FAERS Safety Report 5240033-9 (Version None)
Quarter: 2007Q1

REPORT INFORMATION
  Report Type: 
  Country: None (occurrence: None)
  Receive Date: 20070216
  Receipt Date: 20070208
  Transmission Date: 20070707
  Serious: Yes (Other)
  Sender: FDA-Public Use
  Company Number: GB-ABBOTT-07P-167-0359351-00

PATIENT
  Sex: Female

DRUGS (4)
  1. VALPROATE SODIUM [Suspect]
     Indication: EPILEPSY
     Route: 048
     Dates: start: 19930101
  2. VALPROATE SODIUM [Suspect]
     Dosage: NOT REPORTED
     Dates: start: 19820101, end: 19930101
  3. VALPROATE SODIUM [Suspect]
  4. CARBAMAZEPINE [Concomitant]
     Indication: EPILEPSY
     Route: 048
     Dates: start: 19930101

REACTIONS (2)
  - ELECTROENCEPHALOGRAM ABNORMAL [None]
  - POSTPARTUM HAEMORRHAGE [None]
